FAERS Safety Report 11970087 (Version 1)
Quarter: 2016Q1

REPORT INFORMATION
  Report Type: Spontaneous
  Country: US (occurrence: None)
  Receive Date: 20160126
  Receipt Date: 20160126
  Transmission Date: 20160526
  Serious: Yes (Hospitalization)
  Sender: FDA-Public Use
  Company Number: None

PATIENT
  Age: 49 Year
  Sex: Female
  Weight: 110 kg

DRUGS (13)
  1. BACLOFEN. [Concomitant]
     Active Substance: BACLOFEN
  2. ZOLPIDEM [Concomitant]
     Active Substance: ZOLPIDEM\ZOLPIDEM TARTRATE
  3. NEXIUM [Concomitant]
     Active Substance: ESOMEPRAZOLE MAGNESIUM
  4. FERROUS SULFATE [Concomitant]
     Active Substance: FERROUS SULFATE\FERROUS SULFATE, DRIED
  5. GABAPENTIN. [Concomitant]
     Active Substance: GABAPENTIN
  6. SAVELLA [Concomitant]
     Active Substance: MILNACIPRAN HYDROCHLORIDE
  7. CLONAZEPAM. [Concomitant]
     Active Substance: CLONAZEPAM
  8. LORTAB [Concomitant]
     Active Substance: ACETAMINOPHEN\HYDROCODONE BITARTRATE
  9. ATENOLOL. [Concomitant]
     Active Substance: ATENOLOL
  10. ZOFRAN [Concomitant]
     Active Substance: ONDANSETRON HYDROCHLORIDE
  11. RIVAROXABAN 15MG [Suspect]
     Active Substance: RIVAROXABAN
     Indication: PULMONARY EMBOLISM
     Route: 048
     Dates: start: 20150108, end: 20150108
  12. MULTIVITAMIN [Concomitant]
     Active Substance: VITAMINS
  13. IMITREX [Concomitant]
     Active Substance: SUMATRIPTAN SUCCINATE

REACTIONS (3)
  - Condition aggravated [None]
  - Thrombosis [None]
  - Vaginal haemorrhage [None]

NARRATIVE: CASE EVENT DATE: 20160105
